APPROVED DRUG PRODUCT: LINAGLIPTIN AND METFORMIN HYDROCHLORIDE
Active Ingredient: LINAGLIPTIN; METFORMIN HYDROCHLORIDE
Strength: 2.5MG;500MG
Dosage Form/Route: TABLET;ORAL
Application: A208336 | Product #001 | TE Code: AB
Applicant: SUNSHINE LAKE PHARMA CO LTD
Approved: Aug 30, 2021 | RLD: No | RS: No | Type: RX